FAERS Safety Report 12894207 (Version 5)
Quarter: 2017Q1

REPORT INFORMATION
  Report Type: Report from Study
  Country: US (occurrence: US)
  Receive Date: 20161028
  Receipt Date: 20170104
  Transmission Date: 20170428
  Serious: Yes (Other)
  Sender: FDA-Public Use
  Company Number: US-BAYER-2016-193106

PATIENT
  Age: 66 Year
  Sex: Female

DRUGS (2)
  1. STIVARGA [Suspect]
     Active Substance: REGORAFENIB
     Indication: COLORECTAL CANCER
     Dosage: 120 MG, QD
     Route: 048
     Dates: start: 20160929, end: 20161013
  2. STIVARGA [Suspect]
     Active Substance: REGORAFENIB
     Indication: COLON CANCER
     Dosage: 120 MG, QD
     Route: 048
     Dates: start: 2016

REACTIONS (19)
  - Pain in extremity [Recovering/Resolving]
  - Hyperkeratosis [None]
  - Abdominal pain [None]
  - Hypoaesthesia [None]
  - Paraesthesia [None]
  - Abasia [None]
  - Abdominal pain upper [None]
  - Fatigue [None]
  - Dysphonia [None]
  - Paraesthesia [None]
  - Abdominal pain [None]
  - Rash erythematous [Recovering/Resolving]
  - Drug dose omission [None]
  - Limb discomfort [None]
  - Headache [None]
  - Pain in extremity [None]
  - Arthralgia [None]
  - Asthenia [None]
  - Hypoaesthesia [None]

NARRATIVE: CASE EVENT DATE: 2016
